FAERS Safety Report 17996304 (Version 1)
Quarter: 2020Q3

REPORT INFORMATION
  Report Type: Spontaneous
  Country: NL (occurrence: NL)
  Receive Date: 20200708
  Receipt Date: 20200708
  Transmission Date: 20201103
  Serious: Yes (Other)
  Sender: FDA-Public Use
  Company Number: NL-SA-2020SA174838

PATIENT

DRUGS (1)
  1. FEXOFENADINE HYDROCHLORIDE. [Suspect]
     Active Substance: FEXOFENADINE HYDROCHLORIDE
     Indication: SEASONAL ALLERGY
     Dosage: 1X PER DAG 1
     Route: 065
     Dates: start: 2017

REACTIONS (3)
  - Chest discomfort [Unknown]
  - Arrhythmia [Not Recovered/Not Resolved]
  - Dyspnoea [Unknown]
